FAERS Safety Report 16288841 (Version 1)
Quarter: 2019Q2

REPORT INFORMATION
  Report Type: Spontaneous
  Country: US (occurrence: US)
  Receive Date: 20190509
  Receipt Date: 20190509
  Transmission Date: 20190711
  Serious: No
  Sender: FDA-Public Use
  Company Number: US-ELI_LILLY_AND_COMPANY-US201905002578

PATIENT
  Age: 65 Year
  Sex: Female

DRUGS (3)
  1. TRULICITY [Suspect]
     Active Substance: DULAGLUTIDE
     Dosage: 1.5 MG, WEEKLY (1/W)
     Route: 058
     Dates: start: 20190425
  2. TRULICITY [Suspect]
     Active Substance: DULAGLUTIDE
     Indication: GLOMERULAR FILTRATION RATE INCREASED
     Dosage: 1.5 MG, WEEKLY (1/W)
     Route: 058
     Dates: start: 20190305, end: 20190404
  3. TRULICITY [Suspect]
     Active Substance: DULAGLUTIDE
     Indication: TYPE 2 DIABETES MELLITUS
     Dosage: 1.5 MG, WEEKLY (1/W)
     Route: 058
     Dates: start: 20190205, end: 20190212

REACTIONS (4)
  - Blood creatinine increased [Unknown]
  - Rash [Unknown]
  - Urticaria [Unknown]
  - Cough [Unknown]
